FAERS Safety Report 4816766-2 (Version None)
Quarter: 2005Q4

REPORT INFORMATION
  Report Type: 
  Country: None (occurrence: None)
  Receive Date: 20051028
  Receipt Date: 20051018
  Transmission Date: 20060501
  Serious: Yes (Hospitalization, Other)
  Sender: FDA-Public Use
  Company Number: 2005144045

PATIENT
  Age: 85 Year
  Sex: Female
  Weight: 85.2762 kg

DRUGS (13)
  1. ZYVOX [Suspect]
     Dosage: 1200 MG (600 MG, BID INTERVAL:  EVERY DAY), ORAL
     Route: 048
  2. PREDNISONE [Concomitant]
  3. ALL OTHER THERAPEUTIC PRODUCTS (ALL OTHER THERAPEUTIC PRODUCTS) [Concomitant]
  4. TOPROL (METOPROLOL) [Concomitant]
  5. DITROPAN [Concomitant]
  6. SINEMET [Concomitant]
  7. SYNTHROID [Concomitant]
  8. FOSAMAX [Concomitant]
  9. ALBUTEROL [Concomitant]
  10. ACETAMINOPHEN [Concomitant]
  11. WARFARIN SODIUM [Concomitant]
  12. ATIVAN [Concomitant]
  13. INSULIN [Concomitant]

REACTIONS (3)
  - ABASIA [None]
  - BACK PAIN [None]
  - PAIN IN EXTREMITY [None]
